FAERS Safety Report 5131073-9 (Version None)
Quarter: 2006Q3

REPORT INFORMATION
  Report Type: 
  Country: None (occurrence: None)
  Receive Date: 20060829
  Receipt Date: 20060614
  Transmission Date: 20061208
  Serious: No
  Sender: FDA-Public Use
  Company Number: S06-USA-02333-01

PATIENT
  Age: 55 Year
  Sex: Male

DRUGS (1)
  1. CAMPRAL [Suspect]
     Indication: ALCOHOL REHABILITATION
     Dates: start: 20060601, end: 20060601

REACTIONS (1)
  - HYPERSENSITIVITY [None]
